FAERS Safety Report 6002474-1 (Version None)
Quarter: 2008Q4

REPORT INFORMATION
  Report Type: 
  Country: None (occurrence: None)
  Receive Date: 20081215
  Receipt Date: 20071221
  Transmission Date: 20090506
  Serious: No
  Sender: FDA-Public Use
  Company Number: US-AMGEN-KDL254385

PATIENT
  Sex: Male

DRUGS (5)
  1. ENBREL [Suspect]
     Indication: RHEUMATOID ARTHRITIS
     Route: 058
     Dates: start: 20060202
  2. PROZAC [Concomitant]
  3. PRILOSEC [Concomitant]
  4. MULTI-VITAMINS [Concomitant]
  5. URSODIOL [Concomitant]

REACTIONS (2)
  - INJECTION SITE PARAESTHESIA [None]
  - PAIN IN EXTREMITY [None]
